FAERS Safety Report 8341228-8 (Version None)
Quarter: 2012Q2

REPORT INFORMATION
  Report Type: 
  Country: None (occurrence: None)
  Receive Date: 20120507
  Receipt Date: 20120430
  Transmission Date: 20120825
  Serious: Yes (Hospitalization)
  Sender: FDA-Public Use
  Company Number: CO-MEDIMMUNE-MEDI-0015545

PATIENT
  Sex: Male
  Weight: 2.77 kg

DRUGS (1)
  1. SYNAGIS [Suspect]
     Route: 030
     Dates: start: 20120314, end: 20120314

REACTIONS (1)
  - BRONCHIOLITIS [None]
